FAERS Safety Report 6416053-5 (Version None)
Quarter: 2009Q4

REPORT INFORMATION
  Report Type: 
  Country: None (occurrence: None)
  Receive Date: 20091027
  Receipt Date: 20091014
  Transmission Date: 20100525
  Serious: Yes (Other)
  Sender: FDA-Public Use
  Company Number: US-ELI_LILLY_AND_COMPANY-US200910003410

PATIENT
  Sex: Female

DRUGS (5)
  1. CYMBALTA [Suspect]
     Indication: PAIN IN EXTREMITY
     Dosage: 1 D/F, UNK
  2. REQUIP [Concomitant]
     Indication: MUSCLE SPASMS
     Dosage: 1 D/F, UNK
  3. REBIF [Concomitant]
     Indication: MULTIPLE SCLEROSIS
     Dosage: 0.044 MG, 3/W
     Dates: start: 20051101
  4. ADVIL LIQUI-GELS [Concomitant]
     Indication: PREMEDICATION
     Dosage: 1 D/F, UNK
  5. OTHER ANALGESICS AND ANTIPYRETICS [Concomitant]
     Dosage: 1 D/F, UNK

REACTIONS (2)
  - HEPATIC ENZYME INCREASED [None]
  - OFF LABEL USE [None]
